FAERS Safety Report 25561914 (Version 1)
Quarter: 2025Q3

REPORT INFORMATION
  Report Type: Spontaneous
  Country: AU (occurrence: AU)
  Receive Date: 20250716
  Receipt Date: 20250716
  Transmission Date: 20251020
  Serious: Yes (Hospitalization)
  Sender: CASPER PHARMA
  Company Number: AU-CASPERPHARMA-AU-2025RISLIT00339

PATIENT
  Age: 4 Decade
  Sex: Female

DRUGS (2)
  1. GLYCOPYRROLATE [Suspect]
     Active Substance: GLYCOPYRROLATE
     Indication: Bradycardia
     Route: 065
  2. METARAMINOL [Concomitant]
     Active Substance: METARAMINOL
     Indication: Product used for unknown indication
     Route: 042

REACTIONS (10)
  - Stress cardiomyopathy [Recovered/Resolved]
  - Throat tightness [Recovered/Resolved]
  - Dyspnoea [Recovered/Resolved]
  - Tachycardia [Recovered/Resolved]
  - Heart rate increased [Recovered/Resolved]
  - Hypertension [Recovered/Resolved]
  - Pre-eclampsia [Recovered/Resolved]
  - Dyspnoea paroxysmal nocturnal [Recovered/Resolved]
  - Dizziness [Recovered/Resolved]
  - Maternal exposure during delivery [Unknown]
